FAERS Safety Report 11584654 (Version 1)
Quarter: 2015Q4

REPORT INFORMATION
  Report Type: Spontaneous
  Country: FR (occurrence: FR)
  Receive Date: 20151001
  Receipt Date: 20151001
  Transmission Date: 20160304
  Serious: Yes (Other)
  Sender: FDA-Public Use
  Company Number: FR-ROCHE-1640530

PATIENT
  Age: 30 Year
  Sex: Female

DRUGS (11)
  1. COPEGUS [Suspect]
     Active Substance: RIBAVIRIN
     Indication: CHRONIC HEPATITIS C
     Route: 048
     Dates: start: 201503, end: 20150722
  2. SEROPLEX [Concomitant]
     Active Substance: ESCITALOPRAM OXALATE
  3. DOXYCLINE [Concomitant]
     Active Substance: DOXYCYCLINE
  4. TARDYFERON (FRANCE) [Concomitant]
  5. INEXIUM [Concomitant]
     Active Substance: ESOMEPRAZOLE
  6. LYRICA [Concomitant]
     Active Substance: PREGABALIN
  7. IMOVANE [Concomitant]
     Active Substance: ZOPICLONE
  8. ATARAX [Concomitant]
     Active Substance: HYDROXYZINE\HYDROXYZINE HYDROCHLORIDE
  9. METHADONE [Concomitant]
     Active Substance: METHADONE HYDROCHLORIDE
  10. PEGASYS [Suspect]
     Active Substance: PEGINTERFERON ALFA-2A
     Indication: CHRONIC HEPATITIS C
     Dosage: 19.2857 MG
     Route: 058
     Dates: start: 201503, end: 20150722
  11. PROKINYL [Concomitant]
     Active Substance: METOCLOPRAMIDE HYDROCHLORIDE

REACTIONS (1)
  - Pancytopenia [Recovered/Resolved]

NARRATIVE: CASE EVENT DATE: 201505
